FAERS Safety Report 7833886-9 (Version None)
Quarter: 2011Q4

REPORT INFORMATION
  Report Type: 
  Country: None (occurrence: None)
  Receive Date: 20111024
  Receipt Date: 20111012
  Transmission Date: 20120403
  Serious: Yes (Hospitalization, Disabling)
  Sender: FDA-Public Use
  Company Number: IT-PFIZER INC-2011244371

PATIENT
  Age: 30 Year
  Sex: Male
  Weight: 62 kg

DRUGS (4)
  1. CRIZOTINIB [Suspect]
     Indication: NON-SMALL CELL LUNG CANCER
     Dosage: 250 MG, 2X/DAY
     Route: 048
     Dates: start: 20110620, end: 20110913
  2. DEXAMETHASONE [Concomitant]
     Indication: PROPHYLAXIS
     Dosage: UNK
  3. OMEPRAZOLE [Concomitant]
     Indication: PROPHYLAXIS
  4. LEVETIRACETAM [Concomitant]
     Indication: PROPHYLAXIS

REACTIONS (1)
  - HEPATITIS [None]
